FAERS Safety Report 7691037-8 (Version None)
Quarter: 2011Q3

REPORT INFORMATION
  Report Type: 
  Country: None (occurrence: None)
  Receive Date: 20110818
  Receipt Date: 20110808
  Transmission Date: 20111222
  Serious: Yes (Death, Hospitalization, Other)
  Sender: FDA-Public Use
  Company Number: JP-ROCHE-795977

PATIENT
  Age: 55 Year
  Sex: Male

DRUGS (6)
  1. MYCOPHENOLATE MOFETIL [Suspect]
     Indication: IMMUNOSUPPRESSION
     Route: 065
  2. AZATHIOPRINE [Suspect]
     Indication: IMMUNOSUPPRESSION
     Dosage: DRUG NAME REPORTED AS AZATIOPLINE
     Route: 065
  3. MYCOPHENOLATE MOFETIL [Suspect]
     Dosage: DOSE REDUCED
     Route: 065
  4. PREDNISOLONE [Suspect]
     Dosage: DOSE REDUCED
     Route: 065
  5. AZATHIOPRINE [Suspect]
     Dosage: DOSE REDUCED
     Route: 065
  6. PREDNISOLONE [Suspect]
     Indication: IMMUNOSUPPRESSION
     Route: 065

REACTIONS (5)
  - EPSTEIN-BARR VIRUS ASSOCIATED LYMPHOPROLIFERATIVE DISORDER [None]
  - CYTOMEGALOVIRUS INFECTION [None]
  - RECTAL ULCER HAEMORRHAGE [None]
  - PULMONARY MYCOSIS [None]
  - HERPES ZOSTER [None]
